FAERS Safety Report 18803515 (Version 2)
Quarter: 2022Q1

REPORT INFORMATION
  Report Type: Spontaneous
  Country: US (occurrence: US)
  Receive Date: 20210129
  Receipt Date: 20220223
  Transmission Date: 20220423
  Serious: No
  Sender: FDA-Public Use
  Company Number: US-UCBSA-2019055668

PATIENT
  Age: 54 Year
  Sex: Male
  Weight: 113.4 kg

DRUGS (3)
  1. KEPPRA [Suspect]
     Active Substance: LEVETIRACETAM
     Indication: Seizure
     Dosage: UNK
     Route: 048
  2. LENVIMA [Suspect]
     Active Substance: LENVATINIB
     Indication: Renal cell carcinoma
     Dosage: 18 MILLIGRAM
     Route: 048
     Dates: start: 20191205
  3. AFINITOR [Suspect]
     Active Substance: EVEROLIMUS
     Indication: Renal cell carcinoma
     Dosage: 5 MILLIGRAM
     Route: 048
     Dates: start: 20191205

REACTIONS (1)
  - Fatigue [Not Recovered/Not Resolved]
